FAERS Safety Report 7934602-2 (Version None)
Quarter: 2011Q4

REPORT INFORMATION
  Report Type: 
  Country: None (occurrence: None)
  Receive Date: 20111122
  Receipt Date: 20110901
  Transmission Date: 20120403
  Serious: No
  Sender: FDA-Public Use
  Company Number: US-BAYER-2011-081311

PATIENT
  Age: 56 Year
  Sex: Male

DRUGS (1)
  1. LEVITRA [Suspect]
     Indication: SEXUAL DYSFUNCTION
     Dosage: 10 MG, QD
     Route: 048
     Dates: start: 20100901

REACTIONS (2)
  - VISION BLURRED [None]
  - HEADACHE [None]
